FAERS Safety Report 8766767 (Version 1)
Quarter: 2012Q4

REPORT INFORMATION
  Report Type: 
  Country: US (occurrence: US)
  Receive Date: 20120904
  Receipt Date: 20120904
  Transmission Date: 20130627
  Serious: Yes (Hospitalization, Other)
  Sender: FDA-Public Use
  Company Number: US-BAYER-2012-090190

PATIENT
  Age: 26 Year
  Sex: Female
  Weight: 78.46 kg

DRUGS (3)
  1. YAZ [Suspect]
  2. GIANVI [Suspect]
  3. YASMIN [Suspect]

REACTIONS (3)
  - Deep vein thrombosis [None]
  - Pulmonary embolism [Recovered/Resolved]
  - Cholelithiasis [None]
